FAERS Safety Report 26153423 (Version 1)
Quarter: 2025Q4

REPORT INFORMATION
  Report Type: Spontaneous
  Country: US (occurrence: US)
  Receive Date: 20251214
  Receipt Date: 20251214
  Transmission Date: 20260117
  Serious: No
  Sender: ELI LILLY AND COMPANY
  Company Number: US-ELI_LILLY_AND_COMPANY-US202511031465

PATIENT
  Age: 57 Year
  Sex: Female

DRUGS (1)
  1. ZEPBOUND [Suspect]
     Active Substance: TIRZEPATIDE
     Indication: Product used for unknown indication
     Dosage: 15 MG, UNKNOWN
     Route: 058

REACTIONS (8)
  - Sleep disorder [Recovered/Resolved]
  - Hallucination [Recovered/Resolved]
  - Illness [Not Recovered/Not Resolved]
  - Nervousness [Recovered/Resolved]
  - Wrong technique in product usage process [Unknown]
  - Injection site urticaria [Recovering/Resolving]
  - Injection site pain [Recovered/Resolved]
  - Injection site erythema [Unknown]

NARRATIVE: CASE EVENT DATE: 20251101
